FAERS Safety Report 7897456-9 (Version None)
Quarter: 2011Q4

REPORT INFORMATION
  Report Type: 
  Country: None (occurrence: None)
  Receive Date: 20111107
  Receipt Date: 20111027
  Transmission Date: 20120403
  Serious: Yes (Hospitalization, Other)
  Sender: FDA-Public Use
  Company Number: US-CELGENEUS-163-21880-11103409

PATIENT
  Sex: Female

DRUGS (9)
  1. SODIUM CHLORIDE [Concomitant]
     Route: 065
  2. LEVAQUIN [Concomitant]
     Route: 041
  3. ZOSYN [Concomitant]
     Route: 041
  4. RITUXIMAB [Suspect]
     Dosage: 375 MILLIGRAM/SQ. METER
     Route: 041
     Dates: start: 20110702, end: 20110829
  5. HYDROCORTISONE [Concomitant]
     Route: 065
  6. POTASSIUM CHLORIDE [Concomitant]
     Route: 065
  7. BENDAMUSTINE [Suspect]
     Dosage: 90 MILLIGRAM/SQ. METER
     Route: 041
     Dates: start: 20110702, end: 20110829
  8. VANCOMYCIN [Concomitant]
     Route: 041
  9. REVLIMID [Suspect]
     Route: 048

REACTIONS (3)
  - HYPONATRAEMIA [None]
  - RASH [None]
  - FEBRILE NEUTROPENIA [None]
